FAERS Safety Report 20182224 (Version 2)
Quarter: 2021Q4

REPORT INFORMATION
  Report Type: Spontaneous
  Country: US (occurrence: US)
  Receive Date: 20211214
  Receipt Date: 20211221
  Transmission Date: 20220304
  Serious: No
  Sender: FDA-Public Use
  Company Number: US-SANOFI-00888382

PATIENT
  Age: 18 Year
  Sex: Female

DRUGS (2)
  1. DUPIXENT [Suspect]
     Active Substance: DUPILUMAB
     Indication: Dermatitis atopic
     Dosage: 300 MG, 1X
     Dates: start: 20211207, end: 20211207
  2. EPINEPHRINE [Suspect]
     Active Substance: EPINEPHRINE
     Dosage: UNK

REACTIONS (3)
  - Injection site pain [Unknown]
  - Product preparation error [Unknown]
  - Product use issue [Unknown]

NARRATIVE: CASE EVENT DATE: 20211207
